FAERS Safety Report 4986394-7 (Version None)
Quarter: 2006Q2

REPORT INFORMATION
  Report Type: 
  Country: None (occurrence: None)
  Receive Date: 20060428
  Receipt Date: 20060421
  Transmission Date: 20061013
  Serious: Yes (Death)
  Sender: FDA-Public Use
  Company Number: US-JNJFOC-20060404960

PATIENT
  Age: 2 Month
  Sex: Female

DRUGS (6)
  1. PSEUDOEPHEDRINE HYDROCHLORIDE [Suspect]
  2. DEXTROMETHORPHAN HYDROBROMIDE [Suspect]
  3. EPHEDRINE [Suspect]
  4. CARBINOXAMINE MALEATE [Suspect]
  5. ACETAMINOPHEN [Concomitant]
  6. LEVORPHANOL TARTRATE [Concomitant]

REACTIONS (2)
  - DEPRESSED LEVEL OF CONSCIOUSNESS [None]
  - DRUG TOXICITY [None]
